FAERS Safety Report 17893987 (Version 2)
Quarter: 2021Q3

REPORT INFORMATION
  Report Type: Report from Study
  Country: US (occurrence: US)
  Receive Date: 20200615
  Receipt Date: 20210728
  Transmission Date: 20211014
  Serious: Yes (Hospitalization)
  Sender: FDA-Public Use
  Company Number: US-GW PHARMA-202006USGW02073

PATIENT

DRUGS (2)
  1. EPIDIOLEX [Suspect]
     Active Substance: CANNABIDIOL
     Indication: SEIZURE
     Dosage: 650MG, UNK
     Route: 048
     Dates: start: 20191007, end: 20200607
  2. EPIDIOLEX [Suspect]
     Active Substance: CANNABIDIOL
     Dosage: 450MG, UNK
     Route: 048
     Dates: start: 20200608

REACTIONS (1)
  - Hepatic enzyme abnormal [Unknown]

NARRATIVE: CASE EVENT DATE: 20200608
